FAERS Safety Report 4394109-9 (Version None)
Quarter: 2004Q3

REPORT INFORMATION
  Report Type: 
  Country: None (occurrence: None)
  Receive Date: 20040705
  Receipt Date: 20040628
  Transmission Date: 20050211
  Serious: Yes (Other)
  Sender: FDA-Public Use
  Company Number: 200310701BCA

PATIENT
  Age: 25 Year
  Sex: Female

DRUGS (16)
  1. GAMIMUNE N 10% [Suspect]
     Indication: THROMBOCYTOPENIA NEONATAL
     Dosage: 80 G, TOTAL DAILY, INTRAVENOUS; SEE IMAGE
     Route: 042
     Dates: start: 20030625
  2. GAMIMUNE N 10% [Suspect]
     Indication: THROMBOCYTOPENIA NEONATAL
     Dosage: 80 G, TOTAL DAILY, INTRAVENOUS; SEE IMAGE
     Route: 042
     Dates: start: 20030721
  3. GAMIMUNE N 10% [Suspect]
     Indication: THROMBOCYTOPENIA NEONATAL
     Dosage: 80 G, TOTAL DAILY, INTRAVENOUS; SEE IMAGE
     Route: 042
     Dates: start: 20030805
  4. GAMIMUNE N 10% [Suspect]
     Indication: THROMBOCYTOPENIA NEONATAL
     Dosage: 80 G, TOTAL DAILY, INTRAVENOUS; SEE IMAGE
     Route: 042
     Dates: start: 20030818
  5. GAMIMUNE N 10% [Suspect]
     Indication: THROMBOCYTOPENIA NEONATAL
     Dosage: 80 G, TOTAL DAILY, INTRAVENOUS; SEE IMAGE
     Route: 042
     Dates: start: 20030905
  6. GAMIMUNE N 10% [Suspect]
     Indication: THROMBOCYTOPENIA NEONATAL
     Dosage: 80 G, TOTAL DAILY, INTRAVENOUS; SEE IMAGE
     Route: 042
     Dates: start: 20030915
  7. GAMIMUNE N 10% [Suspect]
     Indication: THROMBOCYTOPENIA NEONATAL
     Dosage: 80 G, TOTAL DAILY, INTRAVENOUS; SEE IMAGE
     Route: 042
     Dates: start: 20030922
  8. GAMIMUNE N 10% [Suspect]
     Indication: THROMBOCYTOPENIA NEONATAL
     Dosage: 80 G, TOTAL DAILY, INTRAVENOUS; SEE IMAGE
     Route: 042
     Dates: start: 20030929
  9. GAMIMUNE N [Suspect]
  10. GAMIMUNE N [Suspect]
  11. GAMIMUNE N [Suspect]
  12. GAMIMUNE N [Suspect]
  13. GAMIMUNE N [Suspect]
  14. GAMIMUNE N [Suspect]
  15. GAMIMUNE N [Suspect]
  16. GAMIMUNE N [Suspect]

REACTIONS (4)
  - CAESAREAN SECTION [None]
  - DRUG EXPOSURE DURING PREGNANCY [None]
  - HIV TEST POSITIVE [None]
  - PREMATURE LABOUR [None]
